FAERS Safety Report 9528161 (Version 2)
Quarter: 2013Q3

REPORT INFORMATION
  Report Type: Spontaneous
  Country: DE (occurrence: None)
  Receive Date: 20130913
  Receipt Date: 20130926
  Transmission Date: 20140515
  Serious: Yes (Hospitalization, Other)
  Sender: FDA-Public Use
  Company Number: AUR-APL-2013-07540

PATIENT
  Age: 1 Day
  Sex: Female
  Weight: 2.39 kg

DRUGS (4)
  1. SERTRALINE [Suspect]
     Indication: DEPRESSION
     Dosage: 50 MG (50 MG, 1 IN 1
     Route: 064
  2. PAROXAT (PARAOXETINE HYDROCHLORIDE) [Concomitant]
  3. BETAMETHASONE (BETAMETHASONE) [Concomitant]
  4. INSULIN (INSULIN) [Concomitant]

REACTIONS (4)
  - Foetal exposure during pregnancy [None]
  - Premature baby [None]
  - Bradycardia neonatal [None]
  - Neonatal respiratory distress syndrome [None]
